FAERS Safety Report 6126959-2 (Version None)
Quarter: 2009Q1

REPORT INFORMATION
  Report Type: 
  Country: None (occurrence: None)
  Receive Date: 20090320
  Receipt Date: 20081020
  Transmission Date: 20090719
  Serious: No
  Sender: FDA-Public Use
  Company Number: US-ABBOTT-08P-163-0482722-00

PATIENT
  Sex: Female

DRUGS (3)
  1. ERYTHROMYCIN [Suspect]
     Indication: INFECTION
     Route: 048
     Dates: start: 19880101, end: 19880101
  2. ERYTHROMYCIN [Suspect]
  3. ERYTHROMYCIN [Suspect]
     Indication: JAW OPERATION
     Route: 042
     Dates: start: 20000101, end: 20000101

REACTIONS (6)
  - BLOOD PRESSURE ABNORMAL [None]
  - FLUSHING [None]
  - NONSPECIFIC REACTION [None]
  - PRURITUS [None]
  - RASH [None]
  - RASH PAPULAR [None]
